FAERS Safety Report 6817774-2 (Version None)
Quarter: 2010Q3

REPORT INFORMATION
  Report Type: 
  Country: None (occurrence: None)
  Receive Date: 20100706
  Receipt Date: 20100628
  Transmission Date: 20110219
  Serious: Yes (Hospitalization)
  Sender: FDA-Public Use
  Company Number: US-GILEAD-2010-0028430

PATIENT
  Sex: Female

DRUGS (16)
  1. LETAIRIS [Suspect]
     Indication: PULMONARY ARTERIAL HYPERTENSION
     Route: 048
     Dates: start: 20091220
  2. OXYGEN [Concomitant]
  3. VENTAVIS [Concomitant]
  4. REVATIO [Concomitant]
  5. WARFARIN [Concomitant]
  6. LISINOPRIL [Concomitant]
  7. PREDNISONE [Concomitant]
  8. METFORMIN HCL [Concomitant]
  9. BACTRIM [Concomitant]
  10. CRESTOR [Concomitant]
  11. ACTOS [Concomitant]
  12. PRILOSEC [Concomitant]
  13. BISOPROLOL FUMARATE AND HYDROCHLOROTHIAZIDE [Concomitant]
  14. NORVASC [Concomitant]
  15. FERROUS SULFATE [Concomitant]
  16. ACTOPLUS MET 15/500 [Concomitant]

REACTIONS (2)
  - CARDIAC FAILURE [None]
  - PNEUMONIA [None]
